FAERS Safety Report 12059258 (Version 1)
Quarter: 2016Q1

REPORT INFORMATION
  Report Type: Spontaneous
  Country: US (occurrence: None)
  Receive Date: 20160209
  Receipt Date: 20160209
  Transmission Date: 20160526
  Serious: Yes (Other)
  Sender: FDA-Public Use
  Company Number: None

PATIENT
  Age: 63 Year
  Sex: Male
  Weight: 113.4 kg

DRUGS (3)
  1. LOSARTAN POTASSIUM 50MG HH 112 FROM CHINA [Suspect]
     Active Substance: LOSARTAN POTASSIUM
     Indication: HYPERTENSION
     Route: 048
     Dates: start: 20160204, end: 20160205
  2. CLARITIN [Concomitant]
     Active Substance: LORATADINE
  3. LEVOTHYROXINE. [Concomitant]
     Active Substance: LEVOTHYROXINE

REACTIONS (5)
  - Headache [None]
  - Product substitution issue [None]
  - Dysgeusia [None]
  - Drug hypersensitivity [None]
  - Blood pressure systolic increased [None]

NARRATIVE: CASE EVENT DATE: 20160202
